FAERS Safety Report 25645527 (Version 2)
Quarter: 2025Q3

REPORT INFORMATION
  Report Type: Report from Study
  Country: GB (occurrence: GB)
  Receive Date: 20250805
  Receipt Date: 20250812
  Transmission Date: 20251020
  Serious: Yes (Other)
  Sender: APELLIS PHARMACEUTICALS
  Company Number: GB-BIOVITRUM-2024-GB-010158

PATIENT

DRUGS (2)
  1. PEGCETACOPLAN [Suspect]
     Active Substance: PEGCETACOPLAN
     Indication: Paroxysmal nocturnal haemoglobinuria
     Dosage: TWICE WEEKLY, INFUSE ONE VIAL TWICEWEEKLY
     Route: 058
     Dates: start: 202311
  2. PEGCETACOPLAN [Suspect]
     Active Substance: PEGCETACOPLAN
     Indication: Paroxysmal nocturnal haemoglobinuria
     Dosage: TWICE WEEKLY, INFUSE ONE VIAL TWICEWEEKLY
     Route: 058
     Dates: start: 202311

REACTIONS (10)
  - Fatigue [Unknown]
  - Pain in extremity [Unknown]
  - Sciatica [Unknown]
  - Mobility decreased [Unknown]
  - Infusion site bruising [Recovering/Resolving]
  - Infusion site mass [Unknown]
  - Hypertension [Unknown]
  - Infusion site haematoma [Unknown]
  - Vascular dementia [Unknown]
  - Productive cough [Recovering/Resolving]
